FAERS Safety Report 5981904-5 (Version None)
Quarter: 2008Q4

REPORT INFORMATION
  Report Type: 
  Country: None (occurrence: None)
  Receive Date: 20081205
  Receipt Date: 20081127
  Transmission Date: 20090506
  Serious: Yes (Hospitalization, Other)
  Sender: FDA-Public Use
  Company Number: BE-ABBOTT-08P-013-0483943-00

PATIENT
  Sex: Female

DRUGS (12)
  1. HUMIRA [Suspect]
     Indication: ANKYLOSING SPONDYLITIS
     Dates: start: 20071113
  2. CANDESARTAN CILEXETIL [Concomitant]
     Indication: DRUG USE FOR UNKNOWN INDICATION
  3. MOXONIDINE [Concomitant]
     Indication: DRUG USE FOR UNKNOWN INDICATION
  4. ZADITEN RETARD [Concomitant]
     Indication: DRUG USE FOR UNKNOWN INDICATION
  5. LORMETOP [Concomitant]
     Indication: DRUG USE FOR UNKNOWN INDICATION
  6. UNI-DIAMICRON [Concomitant]
     Indication: DRUG USE FOR UNKNOWN INDICATION
  7. ACETYLCYSTEINE [Concomitant]
     Indication: DRUG USE FOR UNKNOWN INDICATION
  8. DUOVENT [Concomitant]
     Indication: DRUG USE FOR UNKNOWN INDICATION
  9. SERETIDE [Concomitant]
     Indication: DRUG USE FOR UNKNOWN INDICATION
  10. RISEDRONATE SODIUM [Concomitant]
     Indication: DRUG USE FOR UNKNOWN INDICATION
  11. D-VITAL [Concomitant]
     Indication: DRUG USE FOR UNKNOWN INDICATION
  12. ZOLPIDEM [Concomitant]
     Indication: DRUG USE FOR UNKNOWN INDICATION

REACTIONS (8)
  - ANGINA PECTORIS [None]
  - CARDIAC FAILURE [None]
  - CORONARY ARTERY DISEASE [None]
  - CORONARY ARTERY STENOSIS [None]
  - DYSPNOEA [None]
  - LEFT VENTRICULAR DYSFUNCTION [None]
  - PULMONARY OEDEMA [None]
  - VENTRICULAR EXTRASYSTOLES [None]
